FAERS Safety Report 9316310 (Version 1)
Quarter: 2013Q2

REPORT INFORMATION
  Report Type: Spontaneous
  Country: FR (occurrence: FR)
  Receive Date: 20130530
  Receipt Date: 20130530
  Transmission Date: 20140414
  Serious: Yes (Death)
  Sender: FDA-Public Use
  Company Number: FR-009507513-1305FRA015034

PATIENT
  Age: 50 Year
  Sex: Male

DRUGS (2)
  1. ISENTRESS [Suspect]
     Indication: HIV INFECTION
  2. TRUVADA [Concomitant]
     Indication: HIV INFECTION

REACTIONS (1)
  - Death [Fatal]
